FAERS Safety Report 9493189 (Version 1)
Quarter: 2013Q3

REPORT INFORMATION
  Report Type: Spontaneous
  Country: FR (occurrence: FR)
  Receive Date: 20130902
  Receipt Date: 20130902
  Transmission Date: 20140515
  Serious: Yes (Hospitalization)
  Sender: FDA-Public Use
  Company Number: FR-BRISTOL-MYERS SQUIBB COMPANY-19220466

PATIENT
  Age: 73 Year
  Sex: Male

DRUGS (7)
  1. COUMADINE [Suspect]
     Indication: PULMONARY EMBOLISM
     Dosage: LAST DOSE: 05-MAR-2013
     Route: 048
     Dates: start: 20130221
  2. PREDNISONE [Concomitant]
  3. LASILIX [Concomitant]
  4. PLAVIX [Concomitant]
  5. ATENOLOL [Concomitant]
  6. ARANESP [Concomitant]
  7. HUMALOG [Concomitant]

REACTIONS (2)
  - Haematoma [Recovered/Resolved]
  - Anaemia [Recovered/Resolved]
